FAERS Safety Report 6929041-7 (Version None)
Quarter: 2010Q3

REPORT INFORMATION
  Report Type: 
  Country: None (occurrence: None)
  Receive Date: 20100817
  Receipt Date: 20100804
  Transmission Date: 20110219
  Serious: Yes (Other)
  Sender: FDA-Public Use
  Company Number: RS-BRISTOL-MYERS SQUIBB COMPANY-15235971

PATIENT
  Age: 50 Year
  Sex: Female
  Weight: 75 kg

DRUGS (1)
  1. GLUCOVANCE [Suspect]
     Indication: HYPERGLYCAEMIA
     Dosage: FILM COATED TAB;1DF=2.5/500MG
     Route: 048
     Dates: start: 20100724, end: 20100724

REACTIONS (1)
  - SYNCOPE [None]
